FAERS Safety Report 9126396 (Version 1)
Quarter: 2013Q1

REPORT INFORMATION
  Report Type: Spontaneous
  Country: FR (occurrence: FR)
  Receive Date: 20130117
  Receipt Date: 20130117
  Transmission Date: 20140127
  Serious: Yes (Hospitalization)
  Sender: FDA-Public Use
  Company Number: FR-GLAXOSMITHKLINE-B0857078A

PATIENT
  Age: 56 None
  Sex: Female

DRUGS (7)
  1. ZELITREX [Suspect]
     Indication: HERPES OPHTHALMIC
     Dosage: 500MG PER DAY
     Route: 048
     Dates: start: 20121204, end: 20121211
  2. ZOVIRAX [Suspect]
     Indication: HERPES OPHTHALMIC
     Route: 047
     Dates: start: 20121204, end: 20121211
  3. RIFAMYCIN [Suspect]
     Indication: HERPES OPHTHALMIC
     Route: 047
     Dates: start: 20121204, end: 20121209
  4. TEGRETOL [Concomitant]
  5. PROZAC [Concomitant]
  6. ALPRAZOLAM [Concomitant]
  7. TRANQUITAL [Concomitant]

REACTIONS (3)
  - Rash pruritic [Recovering/Resolving]
  - Rash papular [Recovering/Resolving]
  - Rash pustular [Recovering/Resolving]
